FAERS Safety Report 9415049 (Version 2)
Quarter: 2013Q3

REPORT INFORMATION
  Report Type: Spontaneous
  Country: FR (occurrence: FR)
  Receive Date: 20130723
  Receipt Date: 20130917
  Transmission Date: 20140515
  Serious: Yes (Other)
  Sender: FDA-Public Use
  Company Number: FR-SANOFI-AVENTIS-2013SA071962

PATIENT
  Age: 87 Year
  Sex: Male
  Weight: 178 kg

DRUGS (9)
  1. LOVENOX [Suspect]
     Indication: THROMBOSIS PROPHYLAXIS
     Route: 058
     Dates: start: 20130301, end: 20130303
  2. LASILIX [Concomitant]
     Indication: CARDIAC FAILURE
     Route: 048
     Dates: end: 201302
  3. LASILIX [Concomitant]
     Indication: CARDIAC FAILURE
     Route: 048
     Dates: start: 201302
  4. LASILIX [Concomitant]
     Indication: CARDIAC FAILURE
     Dosage: STRENGTH: 40MG
     Route: 042
     Dates: start: 20130301, end: 20130303
  5. HYDROCORTISONE [Concomitant]
     Indication: ADDISON^S DISEASE
     Dosage: STRENGTH: 10MG
     Route: 048
     Dates: start: 1971
  6. FLUDROCORTISONE [Concomitant]
     Indication: ADDISON^S DISEASE
     Dosage: 2 DF/ WEEK (1 ON THURSDAY AND 1 ON SUNDAY)
     Route: 048
  7. CERIVASTATIN [Concomitant]
     Dosage: AT EVENINGS
     Route: 048
  8. PREVISCAN [Concomitant]
     Dosage: STRENGTH: 20 MG, SCORED TABLET, DOSE:  DF AT EVENINGS
     Route: 048
  9. LANTUS [Concomitant]
     Dosage: STRENGTH: 100 IU/ML, AT EVENINGS.
     Route: 058

REACTIONS (1)
  - Renal failure [Recovering/Resolving]
